FAERS Safety Report 6447795-3 (Version None)
Quarter: 2009Q4

REPORT INFORMATION
  Report Type: 
  Country: None (occurrence: None)
  Receive Date: 20091120
  Receipt Date: 20091109
  Transmission Date: 20100525
  Serious: Yes (Death)
  Sender: FDA-Public Use
  Company Number: NL-PFIZER INC-2009295013

PATIENT
  Age: 57 Year
  Sex: Female

DRUGS (3)
  1. HEPARIN SODIUM [Suspect]
     Indication: ACUTE CORONARY SYNDROME
     Route: 042
  2. CARBASALATE CALCIUM [Suspect]
  3. METOPROLOL [Concomitant]

REACTIONS (4)
  - ACUTE CORONARY SYNDROME [None]
  - INTRACRANIAL ANEURYSM [None]
  - SUBARACHNOID HAEMORRHAGE [None]
  - VENTRICULAR FIBRILLATION [None]
